FAERS Safety Report 6029437-4 (Version None)
Quarter: 2009Q1

REPORT INFORMATION
  Report Type: 
  Country: None (occurrence: None)
  Receive Date: 20090105
  Receipt Date: 20081223
  Transmission Date: 20090719
  Serious: Yes (Death)
  Sender: FDA-Public Use
  Company Number: 2008S1000442

PATIENT
  Sex: Female
  Weight: 116.7 kg

DRUGS (10)
  1. CUBICIN [Suspect]
     Indication: BACTERAEMIA
     Dosage: 6 MG/KG; Q48H; IV
     Route: 042
  2. CUBICIN [Suspect]
     Indication: ENTEROCOCCAL INFECTION
     Dosage: 6 MG/KG; Q48H; IV
     Route: 042
  3. CUBICIN [Suspect]
     Indication: STAPHYLOCOCCAL INFECTION
     Dosage: 6 MG/KG; Q48H; IV
     Route: 042
  4. AMIODARONE HCL [Concomitant]
  5. AMLODIPINE [Concomitant]
  6. UNSPECIFIED ANTICOAGULANT [Concomitant]
  7. FAMOTIDINE [Concomitant]
  8. FUROSEMIDE [Concomitant]
  9. INSULIN GLARGINE [Concomitant]
  10. VANCOMYCIN HYDROCHLORIDE [Concomitant]

REACTIONS (1)
  - BACTERIAL SEPSIS [None]
